FAERS Safety Report 4947174-1 (Version None)
Quarter: 2006Q1

REPORT INFORMATION
  Report Type: 
  Country: None (occurrence: None)
  Receive Date: 20060313
  Receipt Date: 20060228
  Transmission Date: 20060701
  Serious: Yes (Hospitalization, Other)
  Sender: FDA-Public Use
  Company Number: 2006030835

PATIENT
  Age: 60 Year
  Sex: Male

DRUGS (13)
  1. LIPITOR [Suspect]
     Indication: BLOOD CHOLESTEROL INCREASED
  2. CRESTOR [Suspect]
     Indication: BLOOD CHOLESTEROL INCREASED
  3. ALL OTHER THERAPEUTIC PRODUCTS [Concomitant]
  4. COENZYME Q10 [Concomitant]
  5. HYZAAR [Concomitant]
  6. ALLOPURINOL [Concomitant]
  7. MAG-OX (MAGNESIUM OXIDE) [Concomitant]
  8. FOLTX (CYANOCOBALAMIN, FOLIC ACID, PYRIDOXINE) [Concomitant]
  9. ACETYLSALICYLIC ACID SRT [Concomitant]
  10. ACTOS [Concomitant]
  11. SYNTHROID [Concomitant]
  12. PLAVIX [Concomitant]
  13. NORVASC [Concomitant]

REACTIONS (3)
  - BODY HEIGHT DECREASED [None]
  - CORONARY ARTERY SURGERY [None]
  - MYALGIA [None]
